FAERS Safety Report 21415683 (Version 1)
Quarter: 2022Q4

REPORT INFORMATION
  Report Type: Spontaneous
  Country: IT (occurrence: IT)
  Receive Date: 20221006
  Receipt Date: 20221006
  Transmission Date: 20230113
  Serious: Yes (Life-Threatening, Hospitalization, Other)
  Sender: FDA-Public Use
  Company Number: IT-STADA-258433

PATIENT
  Age: 61 Year
  Sex: Male

DRUGS (4)
  1. BORTEZOMIB [Suspect]
     Active Substance: BORTEZOMIB
     Indication: Plasma cell myeloma
     Dosage: UNK
     Route: 065
  2. EPINEPHRINE [Concomitant]
     Active Substance: EPINEPHRINE
     Indication: Cardiogenic shock
     Dosage: 0.12 MICROGRAM/KILOGRAM
     Route: 065
  3. NOREPINEPHRINE [Concomitant]
     Active Substance: NOREPINEPHRINE
     Indication: Cardiogenic shock
     Dosage: 0.2 MICROGRAM/KILOGRAM
     Route: 065
  4. NOREPINEPHRINE [Concomitant]
     Active Substance: NOREPINEPHRINE
     Indication: Cardiogenic shock
     Dosage: 0.3 MICROGRAM/KILOGRAM
     Route: 065

REACTIONS (2)
  - Cardiogenic shock [Recovered/Resolved]
  - Drug ineffective [Unknown]
